FAERS Safety Report 17618276 (Version 1)
Quarter: 2020Q2

REPORT INFORMATION
  Report Type: Spontaneous
  Country: US (occurrence: US)
  Receive Date: 20200402
  Receipt Date: 20200402
  Transmission Date: 20200713
  Serious: Yes (Other)
  Sender: FDA-Public Use
  Company Number: US-BAYER-2020-053581

PATIENT
  Age: 77 Year
  Sex: Male

DRUGS (3)
  1. APIXABAN [Suspect]
     Active Substance: APIXABAN
  2. TICAGRELOR. [Suspect]
     Active Substance: TICAGRELOR
  3. ACETYLSALICYLIC ACID [Suspect]
     Active Substance: ASPIRIN

REACTIONS (3)
  - Rectal haemorrhage [None]
  - Labelled drug-drug interaction medication error [None]
  - Abdominal pain [None]
